FAERS Safety Report 15016990 (Version 1)
Quarter: 2018Q2

REPORT INFORMATION
  Report Type: Spontaneous
  Country: US (occurrence: US)
  Receive Date: 20180523
  Receipt Date: 20180523
  Transmission Date: 20180711
  Serious: No
  Sender: FDA-Public Use
  Company Number: None

PATIENT
  Sex: Female

DRUGS (1)
  1. STELARA [Suspect]
     Active Substance: USTEKINUMAB
     Indication: PSORIASIS
     Dosage: 45MG EVERY 3 MONTHS SQ
     Route: 058
     Dates: start: 20170208

REACTIONS (4)
  - Pain [None]
  - Dermal cyst [None]
  - Drug dose omission [None]
  - Infection [None]
